FAERS Safety Report 16983176 (Version 1)
Quarter: 2019Q4

REPORT INFORMATION
  Report Type: Spontaneous
  Country: AT (occurrence: AT)
  Receive Date: 20191101
  Receipt Date: 20191101
  Transmission Date: 20200122
  Serious: Yes (Other)
  Sender: FDA-Public Use
  Company Number: AT-TEVA-2019-AT-1130290

PATIENT
  Age: 23 Year
  Sex: Female

DRUGS (1)
  1. DICLOBENE 50 MG - FILMTABLETTEN [Suspect]
     Active Substance: DICLOFENAC SODIUM
     Indication: HYPERSENSITIVITY
     Dosage: 50 MILLIGRAM
     Route: 065
     Dates: start: 20190423, end: 20190423

REACTIONS (1)
  - Type I hypersensitivity [Recovered/Resolved]

NARRATIVE: CASE EVENT DATE: 20190423
